FAERS Safety Report 16552611 (Version 7)
Quarter: 2020Q2

REPORT INFORMATION
  Report Type: Spontaneous
  Country: US (occurrence: US)
  Receive Date: 20190710
  Receipt Date: 20200529
  Transmission Date: 20200713
  Serious: No
  Sender: FDA-Public Use
  Company Number: US-PFIZER INC-2019294050

PATIENT
  Age: 43 Year
  Sex: Female
  Weight: 115.46 kg

DRUGS (6)
  1. EFFEXOR XR [Suspect]
     Active Substance: VENLAFAXINE HYDROCHLORIDE
     Indication: ANXIETY
  2. VENLAFAXINE HCL [Suspect]
     Active Substance: VENLAFAXINE HYDROCHLORIDE
     Indication: DEPRESSION
     Dosage: 150 MG, DAILY
     Route: 048
  3. VENLAFAXINE HCL [Suspect]
     Active Substance: VENLAFAXINE HYDROCHLORIDE
     Indication: ANXIETY
  4. EFFEXOR XR [Suspect]
     Active Substance: VENLAFAXINE HYDROCHLORIDE
     Indication: DEPRESSION
     Dosage: 150 MG, 1X/DAY [1 Q DAY / DAILY WITH FOOD]
     Route: 048
  5. EFFEXOR XR [Suspect]
     Active Substance: VENLAFAXINE HYDROCHLORIDE
     Indication: MAJOR DEPRESSION
  6. VENLAFAXINE HCL [Suspect]
     Active Substance: VENLAFAXINE HYDROCHLORIDE
     Indication: MAJOR DEPRESSION

REACTIONS (7)
  - Abnormal dreams [Unknown]
  - Myalgia [Unknown]
  - Withdrawal syndrome [Unknown]
  - Influenza like illness [Unknown]
  - Headache [Unknown]
  - Therapeutic product effect incomplete [Unknown]
  - Arthralgia [Unknown]

NARRATIVE: CASE EVENT DATE: 201805
